FAERS Safety Report 4786954-2 (Version None)
Quarter: 2005Q4

REPORT INFORMATION
  Report Type: 
  Country: None (occurrence: None)
  Receive Date: 20051004
  Receipt Date: 20050914
  Transmission Date: 20060501
  Serious: Yes (Other)
  Sender: FDA-Public Use
  Company Number: PHBS2005JP13551

PATIENT
  Age: 38 Year
  Sex: Female

DRUGS (5)
  1. METHOTREXATE [Concomitant]
     Indication: STEM CELL TRANSPLANT
  2. CYCLOSPORINE [Suspect]
     Indication: STEM CELL TRANSPLANT
     Dosage: UNK, UNK
     Route: 065
     Dates: start: 20041001
  3. CYCLOPHOSPHAMIDE [Concomitant]
     Indication: STEM CELL TRANSPLANT
  4. CYTARABINE [Concomitant]
     Indication: STEM CELL TRANSPLANT
  5. IRRADIATION [Concomitant]
     Indication: STEM CELL TRANSPLANT

REACTIONS (3)
  - AUTOIMMUNE THROMBOCYTOPENIA [None]
  - GRAFT VERSUS HOST DISEASE [None]
  - PETECHIAE [None]
